FAERS Safety Report 8461598-X (Version None)
Quarter: 2012Q2

REPORT INFORMATION
  Report Type: 
  Country: None (occurrence: None)
  Receive Date: 20120625
  Receipt Date: 20120618
  Transmission Date: 20120825
  Serious: Yes (Disabling)
  Sender: FDA-Public Use
  Company Number: PHEH2012US011324

PATIENT
  Sex: Female

DRUGS (4)
  1. CLONAZEPAM [Concomitant]
     Dosage: UNK UKN, UNK
     Dates: end: 20120515
  2. FANAPT [Suspect]
     Indication: PSYCHOTIC DISORDER
     Dosage: 12 MG, BID
     Route: 048
     Dates: start: 20111019
  3. LEXAPRO [Concomitant]
     Indication: ANXIETY
     Dosage: 40 MG, UNK
     Route: 048
     Dates: start: 20110607
  4. FANAPT [Suspect]
     Dosage: 12 MG, QHS
     Route: 048
     Dates: start: 20120531

REACTIONS (8)
  - ATAXIA [None]
  - COGWHEEL RIGIDITY [None]
  - GAIT DISTURBANCE [None]
  - BALANCE DISORDER [None]
  - TREMOR [None]
  - MUSCULOSKELETAL STIFFNESS [None]
  - ANXIETY [None]
  - FALL [None]
